FAERS Safety Report 4368640-6 (Version None)
Quarter: 2004Q2

REPORT INFORMATION
  Report Type: 
  Country: None (occurrence: None)
  Receive Date: 20040602
  Receipt Date: 20040507
  Transmission Date: 20050107
  Serious: Yes (Disabling)
  Sender: FDA-Public Use
  Company Number: US-MERCK-0405USA00483

PATIENT
  Age: 43 Year
  Sex: Female

DRUGS (3)
  1. VIOXX [Suspect]
     Indication: DYSMENORRHOEA
     Route: 048
  2. VIOXX [Suspect]
     Route: 048
  3. VIOXX [Suspect]
     Route: 048

REACTIONS (4)
  - ANXIETY [None]
  - DISORIENTATION [None]
  - FEELING ABNORMAL [None]
  - MENTAL IMPAIRMENT [None]
